FAERS Safety Report 17826010 (Version 1)
Quarter: 2020Q2

REPORT INFORMATION
  Report Type: Spontaneous
  Country: US (occurrence: US)
  Receive Date: 20200526
  Receipt Date: 20200526
  Transmission Date: 20200714
  Serious: No
  Sender: FDA-Public Use
  Company Number: US-UPSHER-SMITH LABORATORIES, LLC-2019USL00665

PATIENT
  Age: 66 Year
  Sex: Female
  Weight: 149.66 kg

DRUGS (3)
  1. NYAMYC [Suspect]
     Active Substance: NYSTATIN
     Indication: MILIARIA
     Dosage: ^A HAND FULL^, UNK
     Route: 061
     Dates: start: 20190815, end: 201908
  2. POTASSIUM [Concomitant]
     Active Substance: POTASSIUM
  3. LASIX [Concomitant]
     Active Substance: FUROSEMIDE

REACTIONS (3)
  - Application site laceration [Not Recovered/Not Resolved]
  - Application site haemorrhage [Not Recovered/Not Resolved]
  - Application site erythema [Not Recovered/Not Resolved]

NARRATIVE: CASE EVENT DATE: 201908
